FAERS Safety Report 9966088 (Version 1)
Quarter: 2014Q1

REPORT INFORMATION
  Report Type: Report from Study
  Country: US (occurrence: US)
  Receive Date: 20140305
  Receipt Date: 20140305
  Transmission Date: 20141002
  Serious: No
  Sender: FDA-Public Use
  Company Number: US-ABBVIE-13P-163-1127663-00

PATIENT
  Age: 55 Year
  Sex: Male

DRUGS (7)
  1. HUMIRA [Suspect]
     Indication: COLITIS ULCERATIVE
     Dosage: LOADING DOSE
     Dates: start: 20130705, end: 20130705
  2. HUMIRA [Suspect]
     Dosage: LOADING DOSE
  3. OTC IRON PILLS [Concomitant]
     Indication: SUPPLEMENTATION THERAPY
  4. LITHIUM [Concomitant]
     Indication: BIPOLAR DISORDER
  5. WELLBUTRIN XL [Concomitant]
     Indication: DEPRESSION
  6. XANAX [Concomitant]
     Indication: PRODUCT USED FOR UNKNOWN INDICATION
     Dosage: 2MG 2-3 TIMES DAILY
  7. LORTAB [Concomitant]
     Indication: PAIN

REACTIONS (9)
  - Tongue discolouration [Not Recovered/Not Resolved]
  - Tongue haemorrhage [Not Recovered/Not Resolved]
  - Oral discomfort [Not Recovered/Not Resolved]
  - Pain [Not Recovered/Not Resolved]
  - Insomnia [Not Recovered/Not Resolved]
  - Fatigue [Not Recovered/Not Resolved]
  - Hallucination [Not Recovered/Not Resolved]
  - Nervousness [Not Recovered/Not Resolved]
  - Tremor [Not Recovered/Not Resolved]
